FAERS Safety Report 4652721-3 (Version None)
Quarter: 2005Q2

REPORT INFORMATION
  Report Type: 
  Country: None (occurrence: None)
  Receive Date: 20050502
  Receipt Date: 20050418
  Transmission Date: 20051028
  Serious: Yes (Other)
  Sender: FDA-Public Use
  Company Number: 2005055668

PATIENT
  Age: 60 Year
  Sex: Male

DRUGS (3)
  1. CAMPTOSAR [Suspect]
     Indication: COLON CANCER
     Dosage: (80 MG/M2, ONCE A WEEK FOR FOUR WEEKS INTERVAL), INTRAVENOUS
     Route: 042
     Dates: start: 20050101
  2. FLUOROURACIL [Concomitant]
  3. LEUCOVORIN CALCIUM [Concomitant]

REACTIONS (3)
  - LIBIDO INCREASED [None]
  - PRIAPISM [None]
  - THERAPEUTIC RESPONSE UNEXPECTED [None]
